FAERS Safety Report 18101072 (Version 1)
Quarter: 2020Q3

REPORT INFORMATION
  Report Type: Spontaneous
  Country: JP (occurrence: JP)
  Receive Date: 20200801
  Receipt Date: 20200801
  Transmission Date: 20201103
  Serious: Yes (Other)
  Sender: FDA-Public Use
  Company Number: JP-SUN PHARMACEUTICAL INDUSTRIES LTD-2020RR-255994

PATIENT
  Age: 38 Year
  Sex: Female

DRUGS (8)
  1. MINOCYCLINE [Suspect]
     Active Substance: MINOCYCLINE HYDROCHLORIDE
     Indication: MYCOBACTERIUM ABSCESSUS INFECTION
  2. IMIPENEM AND CILASTATIN [Suspect]
     Active Substance: CILASTATIN SODIUM\IMIPENEM
     Indication: MYCOBACTERIUM ABSCESSUS INFECTION
  3. MINOCYCLINE [Suspect]
     Active Substance: MINOCYCLINE HYDROCHLORIDE
     Indication: ANTIBIOTIC THERAPY
     Dosage: 200 MILLIGRAM, UNK
     Route: 065
  4. IMIPENEM AND CILASTATIN [Suspect]
     Active Substance: CILASTATIN SODIUM\IMIPENEM
     Indication: ANTIBIOTIC THERAPY
     Dosage: 1 GRAM, UNK
     Route: 042
  5. CLARITHROMYCIN. [Suspect]
     Active Substance: CLARITHROMYCIN
     Indication: MYCOBACTERIUM ABSCESSUS INFECTION
  6. CLARITHROMYCIN. [Suspect]
     Active Substance: CLARITHROMYCIN
     Indication: ANTIBIOTIC THERAPY
     Dosage: 800 MILLIGRAM, UNK
     Route: 048
  7. LINEZOLIDE [Suspect]
     Active Substance: LINEZOLID
     Indication: MYCOBACTERIUM ABSCESSUS INFECTION
  8. LINEZOLIDE [Suspect]
     Active Substance: LINEZOLID
     Indication: ANTIBIOTIC THERAPY
     Dosage: 1.2 GRAM, DAILY
     Route: 042

REACTIONS (2)
  - Platelet count decreased [Unknown]
  - Condition aggravated [Unknown]
